FAERS Safety Report 6817125-3 (Version None)
Quarter: 2010Q3

REPORT INFORMATION
  Report Type: 
  Country: None (occurrence: None)
  Receive Date: 20100706
  Receipt Date: 20100625
  Transmission Date: 20110219
  Serious: Yes (Other)
  Sender: FDA-Public Use
  Company Number: PHFR2010GB01053

PATIENT
  Sex: Male
  Weight: 85 kg

DRUGS (4)
  1. DICLOFENAC SODIUM [Suspect]
     Indication: HIP ARTHROPLASTY
     Dosage: 50 MG, TID
     Route: 048
     Dates: start: 20030220, end: 20041201
  2. ATENOLOL [Concomitant]
     Dosage: 25 MG, QD
     Route: 048
     Dates: start: 20050101, end: 20060109
  3. BENDROFLUAZIDE [Concomitant]
     Indication: HYPERTENSION
     Dosage: 2.5 MG, QD
     Dates: start: 20030411, end: 20030801
  4. CANDESARTAN [Concomitant]
     Dosage: UNK
     Dates: start: 20050101

REACTIONS (3)
  - EYE SWELLING [None]
  - PORPHYRIA NON-ACUTE [None]
  - PRURITUS [None]
